FAERS Safety Report 6843422-1 (Version None)
Quarter: 2010Q3

REPORT INFORMATION
  Report Type: 
  Country: None (occurrence: None)
  Receive Date: 20100712
  Receipt Date: 20100706
  Transmission Date: 20110219
  Serious: Yes (Other)
  Sender: FDA-Public Use
  Company Number: 2010SP031398

PATIENT
  Age: 43 Year
  Sex: Male
  Weight: 82 kg

DRUGS (8)
  1. REBETOL [Suspect]
     Indication: HEPATITIS C
     Dosage: 1000 MG; QD; PO
     Route: 048
     Dates: start: 20100127, end: 20100605
  2. PEG-INTRON [Suspect]
     Indication: HEPATITIS C
     Dosage: 120 MCG; QW; SC
     Route: 058
     Dates: start: 20100127, end: 20100506
  3. INTERFERON [Suspect]
     Indication: HEPATITIS C
     Dosage: 6 MIU; TIW; IV
     Route: 042
     Dates: start: 20100513, end: 20100531
  4. MUCOSTA [Concomitant]
  5. LOXONIN (LOXOPROFEN SODIUM HYDRATE) [Concomitant]
  6. HOKUNALIN (TULOBUTEROL) [Concomitant]
  7. ALLELOCK [Concomitant]
  8. MYSLEE [Concomitant]

REACTIONS (7)
  - BLOOD CREATINE PHOSPHOKINASE INCREASED [None]
  - COUGH [None]
  - DEPRESSION [None]
  - DERMATITIS PSORIASIFORM [None]
  - GASTROINTESTINAL DISORDER [None]
  - INSOMNIA [None]
  - MUSCULOSKELETAL STIFFNESS [None]
